FAERS Safety Report 12055632 (Version 1)
Quarter: 2016Q1

REPORT INFORMATION
  Report Type: Report from Study
  Country: US (occurrence: US)
  Receive Date: 20160209
  Receipt Date: 20160209
  Transmission Date: 20160526
  Serious: Yes (Other)
  Sender: FDA-Public Use
  Company Number: US-BAXALTA-2016BLT000677

PATIENT
  Sex: Female

DRUGS (2)
  1. HYALURONIDASE/IMMUNOGLOBULIN, NORMAL HUMAN [Concomitant]
     Indication: PRIMARY IMMUNODEFICIENCY SYNDROME
     Dosage: PAST THERAPY
     Route: 065
     Dates: end: 201601
  2. GAMMAGARD LIQUID [Suspect]
     Active Substance: HUMAN IMMUNOGLOBULIN G
     Indication: PRIMARY IMMUNODEFICIENCY SYNDROME
     Dosage: UNK
     Route: 058
     Dates: start: 201601

REACTIONS (1)
  - Gastroenteritis viral [Unknown]
